FAERS Safety Report 24064547 (Version 1)
Quarter: 2024Q3

REPORT INFORMATION
  Report Type: Spontaneous
  Country: JP (occurrence: JP)
  Receive Date: 20240709
  Receipt Date: 20240709
  Transmission Date: 20241016
  Serious: Yes (Hospitalization, Other)
  Sender: ROCHE
  Company Number: JP-CHUGAI-2024012346

PATIENT
  Age: 44 Year
  Sex: Female
  Weight: 38.5 kg

DRUGS (5)
  1. AVASTIN [Suspect]
     Active Substance: BEVACIZUMAB
     Indication: Colon cancer
     Dosage: 5 MILLIGRAM/KILOGRAM, ONCE/2WEEKS
     Route: 065
     Dates: start: 20240327, end: 20240327
  2. OXALIPLATIN [Suspect]
     Active Substance: OXALIPLATIN
     Indication: Colon cancer
     Dosage: 85 MILLIGRAM/SQ. METER, ONCE/2WEEKS
     Route: 065
     Dates: start: 20240327
  3. FLUOROURACIL [Suspect]
     Active Substance: FLUOROURACIL
     Indication: Colon cancer
     Dosage: 3200 MILLIGRAM/SQ. METER, ONCE/2WEEKS
     Route: 065
     Dates: start: 20240327
  4. LEVOLEUCOVORIN CALCIUM [Suspect]
     Active Substance: LEVOLEUCOVORIN CALCIUM
     Indication: Colon cancer
     Dosage: 200 MILLIGRAM/SQ. METER, ONCE/2WEEKS
     Route: 065
     Dates: start: 20240327
  5. IRINOTECAN HYDROCHLORIDE [Suspect]
     Active Substance: IRINOTECAN HYDROCHLORIDE
     Indication: Colon cancer
     Dosage: 165 MILLIGRAM/SQ. METER, ONCE/2WEEKS
     Route: 065
     Dates: start: 20240327

REACTIONS (3)
  - Pneumomediastinum [Recovering/Resolving]
  - Peritoneal abscess [Recovered/Resolved]
  - Colon cancer [Unknown]

NARRATIVE: CASE EVENT DATE: 20240405
